FAERS Safety Report 5184750-8 (Version None)
Quarter: 2006Q4

REPORT INFORMATION
  Report Type: 
  Country: None (occurrence: None)
  Receive Date: 20061220
  Receipt Date: 20060419
  Transmission Date: 20070319
  Serious: No
  Sender: FDA-Public Use
  Company Number: US-GLAXOSMITHKLINE-A0602418A

PATIENT
  Age: 51 Year
  Sex: Male

DRUGS (2)
  1. NICODERM CQ [Suspect]
     Dates: start: 20060407
  2. PERCOCET [Concomitant]

REACTIONS (5)
  - AGEUSIA [None]
  - ASTHENIA [None]
  - DIZZINESS [None]
  - IRRITABILITY [None]
  - NAUSEA [None]
